FAERS Safety Report 16417595 (Version 1)
Quarter: 2019Q2

REPORT INFORMATION
  Report Type: Spontaneous
  Country: ES (occurrence: ES)
  Receive Date: 20190611
  Receipt Date: 20190611
  Transmission Date: 20190711
  Serious: Yes (Other)
  Sender: FDA-Public Use
  Company Number: ES-PFIZER INC-2019246943

PATIENT
  Age: 56 Year
  Sex: Female

DRUGS (1)
  1. CLINDAMYCIN HCL [Suspect]
     Active Substance: CLINDAMYCIN HYDROCHLORIDE
     Indication: PULPITIS DENTAL
     Dosage: 300 MG, 1X/DAY
     Route: 048
     Dates: start: 20190408, end: 20190408

REACTIONS (2)
  - Dyspnoea [Unknown]
  - Laryngeal inflammation [Unknown]

NARRATIVE: CASE EVENT DATE: 20190408
